FAERS Safety Report 8932591 (Version 1)
Quarter: 2012Q4

REPORT INFORMATION
  Report Type: 
  Country: CA (occurrence: CA)
  Receive Date: 20121129
  Receipt Date: 20121129
  Transmission Date: 20130627
  Serious: Yes (Other)
  Sender: FDA-Public Use
  Company Number: PHHY2012CA108400

PATIENT

DRUGS (1)
  1. ZOMETA [Suspect]

REACTIONS (1)
  - Osteonecrosis of jaw [Unknown]
